FAERS Safety Report 15997050 (Version 1)
Quarter: 2019Q1

REPORT INFORMATION
  Report Type: Spontaneous
  Country: US (occurrence: US)
  Receive Date: 20190222
  Receipt Date: 20190222
  Transmission Date: 20190418
  Serious: No
  Sender: FDA-Public Use
  Company Number: US-BIOMARINAP-US-2019-122050

PATIENT
  Age: 19 Year
  Sex: Female

DRUGS (2)
  1. KUVAN [Suspect]
     Active Substance: SAPROPTERIN DIHYDROCHLORIDE
     Indication: PHENYLKETONURIA
     Dosage: UNK, QD
     Route: 048
  2. KUVAN [Suspect]
     Active Substance: SAPROPTERIN DIHYDROCHLORIDE
     Dosage: 2200 MILLIGRAM
     Route: 048
     Dates: start: 20190125

REACTIONS (3)
  - Anxiety [Unknown]
  - Depression [Unknown]
  - Mood swings [Unknown]

NARRATIVE: CASE EVENT DATE: 201901
